FAERS Safety Report 5231967-X (Version None)
Quarter: 2007Q1

REPORT INFORMATION
  Report Type: 
  Country: None (occurrence: None)
  Receive Date: 20070206
  Receipt Date: 20070125
  Transmission Date: 20070707
  Serious: Yes (Hospitalization, Other)
  Sender: FDA-Public Use
  Company Number: GB-PFIZER INC-2007007305

PATIENT
  Age: 50 Year
  Sex: Female

DRUGS (3)
  1. CLINDAMYCIN HYDROCHLORIDE CAPSULE [Suspect]
     Indication: OSTEOMYELITIS
     Route: 048
  2. CIPROFLOXACIN HCL [Suspect]
     Indication: OSTEOMYELITIS
     Route: 048
  3. FLUCLOXACILLIN [Concomitant]

REACTIONS (1)
  - TENDON RUPTURE [None]
